FAERS Safety Report 25167703 (Version 2)
Quarter: 2025Q2

REPORT INFORMATION
  Report Type: Spontaneous
  Country: IN (occurrence: IN)
  Receive Date: 20250407
  Receipt Date: 20250602
  Transmission Date: 20250716
  Serious: Yes (Death, Hospitalization)
  Sender: MYLAN
  Company Number: IN-MYLANLABS-2025M1029409

PATIENT
  Age: 54 Year
  Sex: Male

DRUGS (8)
  1. VANCOMYCIN [Suspect]
     Active Substance: VANCOMYCIN
     Indication: Granulicatella infection
  2. VANCOMYCIN [Suspect]
     Active Substance: VANCOMYCIN
     Indication: Endocarditis
  3. CEFTRIAXONE [Suspect]
     Active Substance: CEFTRIAXONE
     Indication: Granulicatella infection
     Dosage: 2 GRAM, BID (EVERY 12?HOURS)
  4. CEFTRIAXONE [Suspect]
     Active Substance: CEFTRIAXONE
     Indication: Endocarditis
  5. GENTAMICIN [Suspect]
     Active Substance: GENTAMICIN
     Indication: Granulicatella infection
     Dosage: 40 MILLIGRAM, BID (EVERY 12?HOURS)
  6. GENTAMICIN [Suspect]
     Active Substance: GENTAMICIN
     Indication: Endocarditis
  7. MEROPENEM [Suspect]
     Active Substance: MEROPENEM
     Indication: Granulicatella infection
  8. MEROPENEM [Suspect]
     Active Substance: MEROPENEM
     Indication: Endocarditis

REACTIONS (1)
  - Drug ineffective [Fatal]
